FAERS Safety Report 25222197 (Version 2)
Quarter: 2025Q2

REPORT INFORMATION
  Report Type: Spontaneous
  Country: CZ (occurrence: CZ)
  Receive Date: 20250421
  Receipt Date: 20250625
  Transmission Date: 20250717
  Serious: Yes (Hospitalization, Other)
  Sender: ELI LILLY AND COMPANY
  Company Number: CZ-ELI_LILLY_AND_COMPANY-CZ202504009676

PATIENT
  Age: 42 Year
  Sex: Female

DRUGS (1)
  1. ABEMACICLIB [Suspect]
     Active Substance: ABEMACICLIB
     Indication: Breast cancer
     Route: 065
     Dates: end: 20250404

REACTIONS (2)
  - Cardiac failure acute [Unknown]
  - Left ventricular dysfunction [Unknown]
